FAERS Safety Report 10356048 (Version 1)
Quarter: 2014Q3

REPORT INFORMATION
  Report Type: Spontaneous
  Country: US (occurrence: US)
  Receive Date: 20140801
  Receipt Date: 20140801
  Transmission Date: 20150326
  Serious: No
  Sender: FDA-Public Use
  Company Number: US-BIOGENIDEC-2014BI072528

PATIENT
  Sex: Female

DRUGS (2)
  1. AVONEX [Suspect]
     Active Substance: INTERFERON BETA-1A
     Indication: MULTIPLE SCLEROSIS
     Route: 030
     Dates: start: 20110703, end: 20110731
  2. AVONEX [Suspect]
     Active Substance: INTERFERON BETA-1A
     Indication: MULTIPLE SCLEROSIS
     Route: 030
     Dates: start: 20080725, end: 20110331

REACTIONS (28)
  - Loss of control of legs [Unknown]
  - Gait disturbance [Unknown]
  - Optic neuritis [Unknown]
  - Paranoia [Unknown]
  - Emotional disorder [Unknown]
  - Blindness [Unknown]
  - Emotional distress [Unknown]
  - Headache [Unknown]
  - Vision blurred [Unknown]
  - Eye disorder [Unknown]
  - Eye pain [Unknown]
  - Mydriasis [Unknown]
  - Abasia [Unknown]
  - Dysstasia [Unknown]
  - Adverse drug reaction [Unknown]
  - Hypertension [Unknown]
  - Crying [Unknown]
  - Personality disorder [Unknown]
  - Mobility decreased [Unknown]
  - Malaise [Unknown]
  - Gastric disorder [Unknown]
  - Central nervous system lesion [Unknown]
  - Pain [Unknown]
  - Feeling abnormal [Unknown]
  - Nervousness [Unknown]
  - Feelings of worthlessness [Unknown]
  - Anxiety [Unknown]
  - Agitation [Unknown]

NARRATIVE: CASE EVENT DATE: 2013
